FAERS Safety Report 9017129 (Version 1)
Quarter: 2013Q1

REPORT INFORMATION
  Report Type: Report from Study
  Country: US (occurrence: US)
  Receive Date: 20130117
  Receipt Date: 20130117
  Transmission Date: 20140127
  Serious: Yes (Life-Threatening)
  Sender: FDA-Public Use
  Company Number: US-CELGENEUS-163-21660-13011789

PATIENT
  Age: 76 Year
  Sex: Male
  Weight: 109.3 kg

DRUGS (24)
  1. ABRAXANE [Suspect]
     Indication: COLORECTAL ADENOCARCINOMA
     Dosage: 260 MILLIGRAM/SQ. METER
     Route: 041
     Dates: start: 20130103
  2. DEXAMETHASONE [Concomitant]
     Indication: PREMEDICATION
     Dosage: 10 MILLIGRAM
     Route: 041
     Dates: start: 20130103
  3. ONDANSETRON [Concomitant]
     Indication: PROPHYLAXIS OF NAUSEA AND VOMITING
     Dosage: 8 MILLIGRAM
     Route: 041
     Dates: start: 20130103
  4. ONDANSETRON [Concomitant]
     Indication: PROPHYLAXIS OF NAUSEA AND VOMITING
  5. NEULASTA [Concomitant]
     Indication: PROPHYLAXIS
     Dosage: 6 MILLIGRAM
     Route: 058
     Dates: start: 20130104, end: 20130104
  6. AMBIEN [Concomitant]
     Indication: PRODUCT USED FOR UNKNOWN INDICATION
     Route: 065
  7. ANUSOL-HC [Concomitant]
     Indication: PRODUCT USED FOR UNKNOWN INDICATION
     Route: 065
  8. BENADRYL [Concomitant]
     Indication: PRODUCT USED FOR UNKNOWN INDICATION
     Dosage: 25 MILLIGRAM
     Route: 048
  9. BENFOTIAMINE [Concomitant]
     Indication: PRODUCT USED FOR UNKNOWN INDICATION
     Dosage: 4 TABLET
     Route: 048
  10. CENTRUM SILVER [Concomitant]
     Indication: PRODUCT USED FOR UNKNOWN INDICATION
     Dosage: 1 TABLET
     Route: 048
  11. DIOVAN [Concomitant]
     Indication: PRODUCT USED FOR UNKNOWN INDICATION
     Dosage: 320 MILLIGRAM
     Route: 048
  12. HYDROCODONE/APAP [Concomitant]
     Indication: PRODUCT USED FOR UNKNOWN INDICATION
     Dosage: 5/500 MG
     Route: 048
  13. HYTRIN [Concomitant]
     Indication: PRODUCT USED FOR UNKNOWN INDICATION
     Dosage: 8 MILLIGRAM
     Route: 048
     Dates: end: 20130103
  14. IMODIUM [Concomitant]
     Indication: DIARRHOEA
     Dosage: 1-2
     Route: 048
  15. LASIX [Concomitant]
     Indication: PRODUCT USED FOR UNKNOWN INDICATION
     Dosage: 40 MILLIGRAM
     Route: 048
  16. LOMOTIL [Concomitant]
     Indication: DIARRHOEA
     Dosage: 1 DOSAGE FORMS
     Route: 048
  17. MAGNESIUM PROTEIN COMPLEX [Concomitant]
     Indication: PRODUCT USED FOR UNKNOWN INDICATION
     Route: 048
  18. NADOLOL [Concomitant]
     Indication: PRODUCT USED FOR UNKNOWN INDICATION
     Dosage: 32 MILLIGRAM
     Route: 048
     Dates: end: 20130103
  19. OMEPRAZOLE [Concomitant]
     Indication: PRODUCT USED FOR UNKNOWN INDICATION
     Dosage: 20 MILLIGRAM
     Route: 048
  20. POTASSIUM CHLORIDE [Concomitant]
     Indication: PRODUCT USED FOR UNKNOWN INDICATION
     Route: 065
  21. STOOL SOFTENER [Concomitant]
     Indication: PRODUCT USED FOR UNKNOWN INDICATION
     Route: 065
  22. MAGNESIUM [Concomitant]
     Indication: PRODUCT USED FOR UNKNOWN INDICATION
     Dosage: 5 GRAM
     Route: 041
  23. CARVEDILOL [Concomitant]
     Indication: PRODUCT USED FOR UNKNOWN INDICATION
     Dosage: 12.5 MILLIGRAM
     Route: 048
     Dates: start: 20130103
  24. PANTOPRAZOLE [Concomitant]
     Indication: PROPHYLAXIS
     Route: 065
     Dates: start: 201301

REACTIONS (3)
  - Dehydration [Not Recovered/Not Resolved]
  - Sepsis [Not Recovered/Not Resolved]
  - Neutrophil count decreased [Not Recovered/Not Resolved]
